FAERS Safety Report 20073328 (Version 17)
Quarter: 2022Q4

REPORT INFORMATION
  Report Type: Report from Study
  Country: CL (occurrence: CL)
  Receive Date: 20211116
  Receipt Date: 20221229
  Transmission Date: 20230113
  Serious: Yes (Other)
  Sender: FDA-Public Use
  Company Number: CL-NOVARTISPH-NVSC2021CL255445

PATIENT
  Age: 71 Year
  Sex: Female

DRUGS (3)
  1. KISQALI [Suspect]
     Active Substance: RIBOCICLIB
     Indication: Breast cancer
     Dosage: UNK
     Route: 065
  2. KISQALI [Suspect]
     Active Substance: RIBOCICLIB
     Dosage: 600 MG, QD
     Route: 048
     Dates: start: 20211108
  3. FULVESTRANT [Suspect]
     Active Substance: FULVESTRANT
     Indication: Breast cancer
     Dosage: UNK
     Route: 065
     Dates: start: 20211028

REACTIONS (38)
  - Accelerated idioventricular rhythm [Unknown]
  - Diabetes mellitus [Unknown]
  - Electrocardiogram QT prolonged [Unknown]
  - Cough [Unknown]
  - Poikilocytosis [Unknown]
  - Anisocytosis [Unknown]
  - Blood alkaline phosphatase increased [Unknown]
  - Elliptocytosis [Unknown]
  - Blood creatinine decreased [Unknown]
  - Anxiety [Unknown]
  - Confusional state [Unknown]
  - Red cell distribution width increased [Unknown]
  - Blood uric acid increased [Unknown]
  - Blood cholesterol decreased [Unknown]
  - Very low density lipoprotein decreased [Unknown]
  - Non-high-density lipoprotein cholesterol decreased [Unknown]
  - Malaise [Unknown]
  - Memory impairment [Unknown]
  - Red blood cell sedimentation rate increased [Unknown]
  - Hyperglycaemia [Unknown]
  - Cognitive disorder [Unknown]
  - High density lipoprotein decreased [Unknown]
  - Laboratory test abnormal [Unknown]
  - Hepatic function abnormal [Unknown]
  - Haemoglobin decreased [Unknown]
  - Neutrophil count decreased [Unknown]
  - Lymphocyte count decreased [Unknown]
  - Fatigue [Unknown]
  - Red blood cell count decreased [Unknown]
  - White blood cell count decreased [Unknown]
  - Haematocrit decreased [Unknown]
  - Electrocardiogram P wave abnormal [Unknown]
  - Electrocardiogram RR interval prolonged [Unknown]
  - Headache [Unknown]
  - Blood thyroid stimulating hormone abnormal [Unknown]
  - Inappropriate schedule of product administration [Unknown]
  - Medication error [Unknown]
  - Wrong technique in product usage process [Unknown]

NARRATIVE: CASE EVENT DATE: 20211104
